FAERS Safety Report 4338602-3 (Version None)
Quarter: 2004Q2

REPORT INFORMATION
  Report Type: 
  Country: None (occurrence: None)
  Receive Date: 20040414
  Receipt Date: 20011008
  Transmission Date: 20050107
  Serious: Yes (Death, Hospitalization)
  Sender: FDA-Public Use
  Company Number: US-MERCK-01101051

PATIENT
  Age: 75 Year
  Sex: Male
  Weight: 86 kg

DRUGS (10)
  1. ALLOPURINOL [Concomitant]
     Route: 065
  2. CELEBREX [Concomitant]
     Route: 065
     Dates: start: 20000701, end: 20000701
  3. COLCHICINE [Concomitant]
     Route: 065
  4. LANOXIN [Concomitant]
     Route: 065
  5. LASIX [Concomitant]
     Route: 065
  6. SKELAXIN [Concomitant]
     Route: 065
     Dates: start: 20000801
  7. K-LOR [Concomitant]
     Route: 065
  8. VIOXX [Suspect]
     Indication: NECK PAIN
     Route: 048
     Dates: start: 20000801, end: 20000901
  9. VIOXX [Suspect]
     Indication: ARTHRALGIA
     Route: 048
     Dates: start: 20000801, end: 20000901
  10. COUMADIN [Suspect]
     Route: 065

REACTIONS (11)
  - AORTIC ANEURYSM [None]
  - CARDIAC DISORDER [None]
  - CARDIAC FAILURE CONGESTIVE [None]
  - CARDIO-RESPIRATORY ARREST [None]
  - CAROTID ARTERY DISEASE [None]
  - CONGESTIVE CARDIOMYOPATHY [None]
  - DIVERTICULUM INTESTINAL HAEMORRHAGIC [None]
  - HYPERTENSION [None]
  - HYPOVOLAEMIC SHOCK [None]
  - MYOCARDIAL INFARCTION [None]
  - RENAL CYST [None]
